FAERS Safety Report 20738791 (Version 2)
Quarter: 2023Q1

REPORT INFORMATION
  Report Type: Spontaneous
  Country: IT (occurrence: IT)
  Receive Date: 20220422
  Receipt Date: 20230106
  Transmission Date: 20230418
  Serious: Yes (Other)
  Sender: FDA-Public Use
  Company Number: IT-LUPIN PHARMACEUTICALS INC.-2022-05931

PATIENT
  Sex: Male
  Weight: 41 kg

DRUGS (2)
  1. CLOBETASOL PROPIONATE [Suspect]
     Active Substance: CLOBETASOL PROPIONATE
     Indication: Stomatitis
     Dosage: 0.56 MG, QD
     Route: 061
  2. PREDNISOLONE [Suspect]
     Active Substance: PREDNISOLONE
     Indication: Crohn^s disease
     Dosage: 0.5-1 MILLIGRAM PER KILOGRAM PER DAY
     Route: 048

REACTIONS (2)
  - Cushing^s syndrome [Recovered/Resolved]
  - Off label use [Unknown]
